FAERS Safety Report 12322852 (Version 1)
Quarter: 2016Q2

REPORT INFORMATION
  Report Type: Spontaneous
  Country: US (occurrence: US)
  Receive Date: 20160502
  Receipt Date: 20160502
  Transmission Date: 20160815
  Serious: No
  Sender: FDA-Public Use
  Company Number: US-JNJFOC-20160315331

PATIENT
  Age: 81 Year
  Sex: Female
  Weight: 78.47 kg

DRUGS (2)
  1. IMODIUM A-D [Suspect]
     Active Substance: LOPERAMIDE HYDROCHLORIDE
     Route: 048
  2. IMODIUM A-D [Suspect]
     Active Substance: LOPERAMIDE HYDROCHLORIDE
     Indication: DIARRHOEA
     Dosage: CAPFULL
     Route: 048

REACTIONS (3)
  - Constipation [Recovered/Resolved]
  - Incorrect dose administered [Unknown]
  - Off label use [Unknown]
